FAERS Safety Report 23529420 (Version 1)
Quarter: 2024Q1

REPORT INFORMATION
  Report Type: Other
  Country: GB (occurrence: None)
  Receive Date: 20240216
  Receipt Date: 20240216
  Transmission Date: 20240410
  Serious: Yes (Other)
  Sender: FDA-Public Use
  Company Number: GB-ROCHE-3509072

PATIENT
  Sex: Female

DRUGS (3)
  1. TOCILIZUMAB [Suspect]
     Active Substance: TOCILIZUMAB
     Indication: Rheumatoid arthritis
     Route: 058
     Dates: start: 20240125
  2. ASPIRIN [Concomitant]
     Active Substance: ASPIRIN
  3. CODEINE [Concomitant]
     Active Substance: CODEINE

REACTIONS (2)
  - Decreased appetite [Unknown]
  - Myocardial infarction [Unknown]
